FAERS Safety Report 25767916 (Version 1)
Quarter: 2025Q3

REPORT INFORMATION
  Report Type: Spontaneous
  Country: US (occurrence: US)
  Receive Date: 20250905
  Receipt Date: 20250905
  Transmission Date: 20251020
  Serious: No
  Sender: DOMPE FARMACEUTICI
  Company Number: US-FARMAPROD-202505-1631

PATIENT
  Sex: Male

DRUGS (7)
  1. OXERVATE [Suspect]
     Active Substance: CENEGERMIN-BKBJ
     Indication: Neurotrophic keratopathy
     Route: 047
     Dates: start: 20250507
  2. OXERVATE [Suspect]
     Active Substance: CENEGERMIN-BKBJ
  3. FISH OIL [Concomitant]
     Active Substance: FISH OIL
  4. REFRESH P.M. [Concomitant]
     Active Substance: MINERAL OIL\PETROLATUM
  5. LOTEMAX [Concomitant]
     Active Substance: LOTEPREDNOL ETABONATE
  6. MIEBO [Concomitant]
     Active Substance: PERFLUOROHEXYLOCTANE
  7. TIMOLOL [Concomitant]
     Active Substance: TIMOLOL

REACTIONS (3)
  - Eye infection [Unknown]
  - Eye allergy [Unknown]
  - Eye irritation [Unknown]
